FAERS Safety Report 12876192 (Version 1)
Quarter: 2016Q4

REPORT INFORMATION
  Report Type: Spontaneous
  Country: US (occurrence: US)
  Receive Date: 20161021
  Receipt Date: 20161021
  Transmission Date: 20170207
  Serious: Yes (Hospitalization)
  Sender: FDA-Public Use
  Company Number: None

PATIENT
  Age: 44 Year
  Sex: Male
  Weight: 97 kg

DRUGS (1)
  1. MUCINEX [Suspect]
     Active Substance: GUAIFENESIN

REACTIONS (4)
  - Lip swelling [None]
  - Rash pruritic [None]
  - Throat tightness [None]
  - Tongue disorder [None]

NARRATIVE: CASE EVENT DATE: 20160118
